FAERS Safety Report 18324585 (Version 1)
Quarter: 2020Q3

REPORT INFORMATION
  Report Type: Spontaneous
  Country: US (occurrence: US)
  Receive Date: 20200929
  Receipt Date: 20200929
  Transmission Date: 20201103
  Serious: Yes (Life-Threatening)
  Sender: FDA-Public Use
  Company Number: None

PATIENT
  Age: 61 Year
  Sex: Male
  Weight: 56.2 kg

DRUGS (7)
  1. SEVOFLURANE. [Suspect]
     Active Substance: SEVOFLURANE
  2. MIDAZOLAM. [Suspect]
     Active Substance: MIDAZOLAM
     Dosage: ?          OTHER FREQUENCY:DURING OR CASE;?
     Route: 040
  3. ROCURONIUM 65MG [Concomitant]
  4. SUGAMMADEX 150MG [Concomitant]
  5. EPHEDRINE 10MG [Concomitant]
  6. FENTANYL 100MCG [Concomitant]
  7. PROPOFOL 150MG [Concomitant]

REACTIONS (1)
  - Hypoglycaemia [None]

NARRATIVE: CASE EVENT DATE: 20200818
